FAERS Safety Report 9841393 (Version 1)
Quarter: 2014Q1

REPORT INFORMATION
  Report Type: Not Available
  Country: IT (occurrence: IT)
  Receive Date: 20140124
  Receipt Date: 20140124
  Transmission Date: 20141002
  Serious: Yes (Hospitalization)
  Sender: FDA-Public Use
  Company Number: IT-BEH-2014040311

PATIENT
  Age: 1 Year
  Sex: Male

DRUGS (3)
  1. PRIVIGEN [Suspect]
     Dates: start: 20140110
  2. PRIVIGEN [Suspect]
     Indication: KAWASAKI^S DISEASE
     Route: 042
     Dates: start: 20140114, end: 20140114
  3. ASPIRIN [Concomitant]

REACTIONS (6)
  - Angioedema [Recovered/Resolved]
  - Rash [Recovered/Resolved]
  - Lip oedema [Recovered/Resolved]
  - Localised oedema [Recovered/Resolved]
  - Eyelid oedema [Recovered/Resolved]
  - Rash [Recovered/Resolved]
